FAERS Safety Report 8602555-X (Version None)
Quarter: 2012Q3

REPORT INFORMATION
  Report Type: 
  Country: None (occurrence: None)
  Receive Date: 20120817
  Receipt Date: 20120809
  Transmission Date: 20120928
  Serious: Yes (Hospitalization)
  Sender: FDA-Public Use
  Company Number: US-INCYTE CORPORATION-2012IN001521

PATIENT
  Sex: Male
  Weight: 62.2 kg

DRUGS (6)
  1. TREPROSTINIL [Suspect]
     Indication: PULMONARY ARTERIAL HYPERTENSION
     Dosage: 18-54 MCG, QID
     Route: 055
     Dates: start: 20120510
  2. COUMADIN [Suspect]
  3. JAKAFI [Suspect]
     Dosage: 20 MG, QD
     Dates: start: 20120701
  4. UNSPECIFIED DIURETICS [Concomitant]
  5. JAKAFI [Suspect]
     Dosage: 40 MG, QD
     Route: 048
     Dates: end: 20120701
  6. DIGOXIN [Concomitant]

REACTIONS (2)
  - EPISTAXIS [None]
  - DRUG PRESCRIBING ERROR [None]
